FAERS Safety Report 19519525 (Version 1)
Quarter: 2021Q3

REPORT INFORMATION
  Report Type: Spontaneous
  Country: US (occurrence: US)
  Receive Date: 20210709
  Receipt Date: 20210709
  Transmission Date: 20211014
  Serious: No
  Sender: FDA-Public Use
  Company Number: None

PATIENT
  Age: 65 Year
  Sex: Female

DRUGS (10)
  1. IBESARTIN [Concomitant]
  2. NIFEDIPINE ER 30MG TABLET [Suspect]
     Active Substance: NIFEDIPINE
     Indication: BLOOD PRESSURE MEASUREMENT
     Dosage: ?          QUANTITY:90 DF DOSAGE FORM;?
     Route: 048
     Dates: start: 20210530, end: 20210704
  3. TYLENOL [Concomitant]
     Active Substance: ACETAMINOPHEN
  4. EZETIMIBE. [Concomitant]
     Active Substance: EZETIMIBE
  5. METROPOPOL [Concomitant]
  6. ATORVASTATIN [Concomitant]
     Active Substance: ATORVASTATIN
  7. VITAMIN D [Concomitant]
     Active Substance: VITAMIN D NOS
  8. METFORMIN [Suspect]
     Active Substance: METFORMIN HYDROCHLORIDE
  9. GENERIC ZETIA [Concomitant]
  10. BENZTROPINE?HALDOPERDOL [Concomitant]

REACTIONS (3)
  - Diarrhoea [None]
  - Vomiting [None]
  - Rash [None]

NARRATIVE: CASE EVENT DATE: 20210701
